FAERS Safety Report 6040783-0 (Version None)
Quarter: 2009Q1

REPORT INFORMATION
  Report Type: 
  Country: None (occurrence: None)
  Receive Date: 20090116
  Receipt Date: 20080527
  Transmission Date: 20090719
  Serious: No
  Sender: FDA-Public Use
  Company Number: US-BRISTOL-MYERS SQUIBB COMPANY-14206049

PATIENT
  Age: 43 Year
  Sex: Female
  Weight: 47 kg

DRUGS (9)
  1. ABILIFY [Suspect]
     Indication: BIPOLAR DISORDER
     Dosage: STARTED APPROXIMATELY 10 MONTHS AGO DISCONTINUED 4 MONTHS AGO RESTARTED 3 WEEKS AGO
     Dates: start: 20070101
  2. WELLBUTRIN [Concomitant]
  3. ARTANE [Concomitant]
  4. KLONOPIN [Concomitant]
  5. HYDROCHLOROTHIAZIDE [Concomitant]
  6. NEURONTIN [Concomitant]
  7. IRON [Concomitant]
  8. PREVACID [Concomitant]
  9. METAMUCIL [Concomitant]

REACTIONS (2)
  - AMENORRHOEA [None]
  - SMEAR CERVIX ABNORMAL [None]
